FAERS Safety Report 8608848-4 (Version None)
Quarter: 2012Q3

REPORT INFORMATION
  Report Type: 
  Country: None (occurrence: None)
  Receive Date: 20120821
  Receipt Date: 20120806
  Transmission Date: 20120928
  Serious: Yes (Hospitalization)
  Sender: FDA-Public Use
  Company Number: US-ROCHE-1098587

PATIENT
  Sex: Male

DRUGS (1)
  1. XELODA [Suspect]
     Indication: COLON CANCER
     Route: 048
     Dates: start: 20120711, end: 20120806

REACTIONS (5)
  - FAECAL VOLUME DECREASED [None]
  - DIARRHOEA [None]
  - CHILLS [None]
  - PYREXIA [None]
  - DYSURIA [None]
